FAERS Safety Report 21243516 (Version 1)
Quarter: 2022Q3

REPORT INFORMATION
  Report Type: Spontaneous
  Country: US (occurrence: None)
  Receive Date: 20220822
  Receipt Date: 20220822
  Transmission Date: 20221027
  Serious: Yes (Other)
  Sender: FDA-Public Use
  Company Number: None

PATIENT
  Age: 50 Year
  Sex: Female
  Weight: 47.7 kg

DRUGS (4)
  1. .DELTA.8-TETRAHYDROCANNABINOL\CANNABIDIOL\HERBALS [Suspect]
     Active Substance: .DELTA.8-TETRAHYDROCANNABINOL\CANNABIDIOL\HERBALS
     Indication: Insomnia
     Dosage: OTHER QUANTITY : 1 TABLET(S);?FREQUENCY : AT BEDTIME;?
     Route: 048
  2. VITAMIN D [Concomitant]
     Active Substance: VITAMIN D NOS
  3. COD LIVER OIL [Concomitant]
     Active Substance: COD LIVER OIL
  4. GELATIN [Concomitant]

REACTIONS (6)
  - Cardiac flutter [None]
  - Dry mouth [None]
  - Dehydration [None]
  - Anxiety [None]
  - Discomfort [None]
  - Speech disorder [None]

NARRATIVE: CASE EVENT DATE: 20220821
